FAERS Safety Report 6279530-6 (Version None)
Quarter: 2009Q3

REPORT INFORMATION
  Report Type: 
  Country: None (occurrence: None)
  Receive Date: 20090723
  Receipt Date: 20090716
  Transmission Date: 20100115
  Serious: Yes (Hospitalization, Other)
  Sender: FDA-Public Use
  Company Number: US-JNJFOC-20090706135

PATIENT
  Sex: Female
  Weight: 89.81 kg

DRUGS (5)
  1. DURAGESIC-100 [Suspect]
     Route: 062
  2. DURAGESIC-100 [Suspect]
     Route: 062
  3. DURAGESIC-100 [Suspect]
     Indication: OSTEOARTHRITIS
     Route: 062
  4. ZANAFLEX [Concomitant]
     Indication: SLEEP DISORDER THERAPY
     Route: 048
  5. MOBIC [Concomitant]
     Indication: OSTEOARTHRITIS
     Route: 048

REACTIONS (6)
  - LIGAMENT DISORDER [None]
  - OSTEOARTHRITIS [None]
  - PAIN [None]
  - TENDON DISORDER [None]
  - THERAPY CESSATION [None]
  - WRONG TECHNIQUE IN DRUG USAGE PROCESS [None]
